FAERS Safety Report 25436792 (Version 1)
Quarter: 2025Q2

REPORT INFORMATION
  Report Type: Spontaneous
  Country: US (occurrence: US)
  Receive Date: 20250615
  Receipt Date: 20250615
  Transmission Date: 20250717
  Serious: Yes (Hospitalization)
  Sender: Pangea Pharmaceuticals
  Company Number: US-PANGEAPHARMA-2025PAN00007

PATIENT
  Age: 53 Year
  Sex: Male

DRUGS (8)
  1. DEXAMETHASONE [Suspect]
     Active Substance: DEXAMETHASONE
     Indication: Musculoskeletal pain
     Dosage: ONE CAPSULE ONCE
  2. DEXAMETHASONE [Suspect]
     Active Substance: DEXAMETHASONE
     Indication: Fatigue
     Dosage: TWICE A DAY ON WORKDAYS
  3. MELOXICAM [Concomitant]
     Active Substance: MELOXICAM
     Dosage: ONE CAPSULE ONCE
  4. MELOXICAM [Concomitant]
     Active Substance: MELOXICAM
     Indication: Fatigue
     Dosage: TWICE A DAY ON WORKDAYS
  5. KETOROLAC [Concomitant]
     Active Substance: KETOROLAC TROMETHAMINE
     Dosage: ONE CAPSULE ONCE
  6. KETOROLAC [Concomitant]
     Active Substance: KETOROLAC TROMETHAMINE
     Indication: Fatigue
     Dosage: TWICE A DAY ON WORKDAYS
  7. ADALIMUMAB [Concomitant]
     Active Substance: ADALIMUMAB
     Indication: Psoriasis
  8. ADALIMUMAB [Concomitant]
     Active Substance: ADALIMUMAB
     Indication: Ankylosing spondylitis

REACTIONS (1)
  - Psoriasis [Recovered/Resolved]
